FAERS Safety Report 23045843 (Version 2)
Quarter: 2023Q4

REPORT INFORMATION
  Report Type: Spontaneous
  Country: US (occurrence: US)
  Receive Date: 20231009
  Receipt Date: 20231016
  Transmission Date: 20240110
  Serious: No
  Sender: FDA-Public Use
  Company Number: US-ABBVIE-5441101

PATIENT
  Age: 75 Year
  Sex: Male
  Weight: 99 kg

DRUGS (4)
  1. LINZESS [Suspect]
     Active Substance: LINACLOTIDE
     Indication: Irritable bowel syndrome
     Dosage: STRENGTH: 145 UG
     Route: 048
     Dates: start: 20230914, end: 202309
  2. DONEPEZIL [Concomitant]
     Active Substance: DONEPEZIL
     Indication: Memory impairment
     Route: 065
  3. PRAMIPEXOLE [Concomitant]
     Active Substance: PRAMIPEXOLE
     Indication: Restless legs syndrome
     Route: 065
  4. LISINOPRIL [Concomitant]
     Active Substance: LISINOPRIL
     Indication: Blood pressure measurement
     Route: 065

REACTIONS (4)
  - Intentional product misuse [Not Recovered/Not Resolved]
  - Abdominal discomfort [Recovering/Resolving]
  - Diarrhoea [Recovering/Resolving]
  - Dehydration [Recovering/Resolving]

NARRATIVE: CASE EVENT DATE: 20230901
